FAERS Safety Report 6383036-3 (Version None)
Quarter: 2009Q3

REPORT INFORMATION
  Report Type: 
  Country: None (occurrence: None)
  Receive Date: 20090930
  Receipt Date: 20090922
  Transmission Date: 20100115
  Serious: Yes (Hospitalization, Other)
  Sender: FDA-Public Use
  Company Number: DE-ABBOTT-09P-062-0598686-00

PATIENT
  Weight: 94 kg

DRUGS (4)
  1. HUMIRA [Suspect]
     Indication: ANKYLOSING SPONDYLITIS
     Route: 058
     Dates: start: 20090501, end: 20090801
  2. RAMIPRIL [Concomitant]
     Indication: DRUG USE FOR UNKNOWN INDICATION
     Dosage: 5/25
  3. METHOTREXATE SODIUM [Concomitant]
     Indication: ANKYLOSING SPONDYLITIS
  4. PREDNISOLONE [Concomitant]
     Indication: ANKYLOSING SPONDYLITIS

REACTIONS (7)
  - DIABETIC KETOACIDOTIC HYPERGLYCAEMIC COMA [None]
  - ESCHERICHIA SEPSIS [None]
  - HYPOKALAEMIA [None]
  - PROTEUS INFECTION [None]
  - PSEUDOMONAS INFECTION [None]
  - THROMBOCYTOPENIA [None]
  - UROSEPSIS [None]
